FAERS Safety Report 4957943-X (Version None)
Quarter: 2006Q1

REPORT INFORMATION
  Report Type: 
  Country: None (occurrence: None)
  Receive Date: 20060330
  Receipt Date: 20051025
  Transmission Date: 20060701
  Serious: Yes (Hospitalization)
  Sender: FDA-Public Use
  Company Number: US-MERCK-0510USA09193

PATIENT
  Age: 53 Year
  Sex: Male
  Weight: 125 kg

DRUGS (4)
  1. VIOXX [Suspect]
     Indication: MYALGIA
     Route: 048
     Dates: start: 20040122, end: 20040725
  2. VIOXX [Suspect]
     Indication: PAIN
     Route: 048
     Dates: start: 20040122, end: 20040725
  3. ZOCOR [Concomitant]
     Indication: BLOOD CHOLESTEROL INCREASED
     Route: 065
  4. CELEBREX [Concomitant]
     Indication: MYALGIA
     Route: 065

REACTIONS (2)
  - CEREBROVASCULAR ACCIDENT [None]
  - WEIGHT INCREASED [None]
